FAERS Safety Report 6323104-5 (Version None)
Quarter: 2009Q3

REPORT INFORMATION
  Report Type: 
  Country: None (occurrence: None)
  Receive Date: 20090824
  Receipt Date: 20090320
  Transmission Date: 20100115
  Serious: No
  Sender: FDA-Public Use
  Company Number: US-ABBOTT-09P-163-0563803-00

PATIENT
  Sex: Female
  Weight: 89.892 kg

DRUGS (11)
  1. NIASPAN [Suspect]
     Indication: HYPERLIPIDAEMIA
     Route: 048
     Dates: start: 20090315, end: 20090315
  2. FOSAMAX [Concomitant]
     Indication: OSTEOPOROSIS
  3. ACEON [Concomitant]
     Indication: DRUG USE FOR UNKNOWN INDICATION
  4. ATENOLOL [Concomitant]
     Indication: HYPERTENSION
  5. PRAVACHOL [Concomitant]
     Indication: BLOOD CHOLESTEROL INCREASED
  6. HYDROCHLOROTHIAZIDE [Concomitant]
     Indication: HYPERTENSION
  7. ZETIA [Concomitant]
     Indication: BLOOD CHOLESTEROL INCREASED
  8. ASPIRIN [Concomitant]
     Indication: DRUG USE FOR UNKNOWN INDICATION
  9. DARVOCET [Concomitant]
     Indication: OSTEOPOROSIS
  10. DARVOCET [Concomitant]
     Indication: PAIN
  11. AMLODIPINE [Concomitant]
     Indication: HYPERTENSION

REACTIONS (5)
  - BURNING SENSATION [None]
  - DYSPNOEA [None]
  - FLUSHING [None]
  - PRURITUS [None]
  - SKIN BURNING SENSATION [None]
